FAERS Safety Report 7517331-9 (Version None)
Quarter: 2011Q2

REPORT INFORMATION
  Report Type: 
  Country: None (occurrence: None)
  Receive Date: 20110601
  Receipt Date: 20110531
  Transmission Date: 20111010
  Serious: Yes (Other)
  Sender: FDA-Public Use
  Company Number: US-UCBSA-034313

PATIENT
  Sex: Female
  Weight: 46 kg

DRUGS (7)
  1. IMURAN [Concomitant]
     Dosage: TWICE A DAY
     Route: 048
  2. ESOMEPRAZOLE MAGNESIUM [Concomitant]
     Route: 048
     Dates: start: 20110101
  3. ACETAMINOPHEN [Concomitant]
     Route: 048
  4. CALCIUM CARBONATE [Concomitant]
     Dosage: ONCE A DAY
     Route: 048
     Dates: start: 20090101
  5. MULTI-VITAMIN [Concomitant]
     Dosage: ONCE A DAY
     Route: 048
     Dates: start: 20110101
  6. LOMOTIL [Concomitant]
     Dosage: 2 PILLS IN AM AND 2 BEFORE BEDTIME
     Route: 048
  7. CIMZIA [Suspect]
     Indication: CROHN'S DISEASE
     Route: 058
     Dates: start: 20090101

REACTIONS (3)
  - LOCALISED OEDEMA [None]
  - OEDEMA PERIPHERAL [None]
  - PERIPHERAL ARTERIAL OCCLUSIVE DISEASE [None]
